FAERS Safety Report 5933813-5 (Version None)
Quarter: 2008Q4

REPORT INFORMATION
  Report Type: 
  Country: None (occurrence: None)
  Receive Date: 20081027
  Receipt Date: 20081017
  Transmission Date: 20090506
  Serious: Yes (Disabling)
  Sender: FDA-Public Use
  Company Number: 2008JP001392

PATIENT
  Age: 73 Year
  Sex: Male
  Weight: 41 kg

DRUGS (11)
  1. VESICARE [Suspect]
     Indication: HYPERTONIC BLADDER
     Dosage: 2.5 MG, UID/QD, ORAL; 2.5 MG, BID, ORAL
     Route: 048
     Dates: start: 20071203, end: 20071226
  2. VESICARE [Suspect]
     Indication: HYPERTONIC BLADDER
     Dosage: 2.5 MG, UID/QD, ORAL; 2.5 MG, BID, ORAL
     Route: 048
     Dates: start: 20071227, end: 20080317
  3. FAMOTIDINE [Suspect]
     Dosage: 40 MG, ORAL
     Route: 048
  4. CEFOPERAZONE SODIUM [Suspect]
     Dosage: 2000 MG,
     Dates: start: 20080314, end: 20080317
  5. MAINTATE (BISOPROLOL FUMARATE) PER ORAL NOS [Concomitant]
  6. CARDENALIN (DOXAZOSIN MESILATE) PER ORAL NOS [Concomitant]
  7. ADALAT PER ORAL NOS [Concomitant]
  8. ACECOL (TEMOCAPRIL HYDROCHLORIDE) PER ORAL NOS [Concomitant]
  9. MICARDIS [Concomitant]
  10. URSO (URSODEOXYCHOLIC ACID) PER ORAL NOS [Concomitant]
  11. PROMAC (POLAPREZINC) PER ORAL NOS [Concomitant]

REACTIONS (2)
  - CONDITION AGGRAVATED [None]
  - RENAL FAILURE CHRONIC [None]
